FAERS Safety Report 11434067 (Version 1)
Quarter: 2015Q3

REPORT INFORMATION
  Report Type: Spontaneous
  Country: US (occurrence: None)
  Receive Date: 20150828
  Receipt Date: 20150828
  Transmission Date: 20151125
  Serious: No
  Sender: FDA-Public Use
  Company Number: None

PATIENT
  Age: 5 Year
  Sex: Female

DRUGS (8)
  1. OMEPRAZOLE. [Concomitant]
     Active Substance: OMEPRAZOLE
  2. SODIUM CHLORIDE. [Concomitant]
     Active Substance: SODIUM CHLORIDE
  3. ALBUTEROL. [Concomitant]
     Active Substance: ALBUTEROL
  4. PROAIR HFA [Concomitant]
     Active Substance: ALBUTEROL SULFATE
  5. TOBRAMYCIN 300MG TEVA [Suspect]
     Active Substance: TOBRAMYCIN
     Dates: start: 20150717
  6. AQUADEKS [Concomitant]
  7. PULMOZYME [Suspect]
     Active Substance: DORNASE ALFA
     Dates: start: 20130826
  8. CREON [Concomitant]
     Active Substance: PANCRELIPASE AMYLASE\PANCRELIPASE LIPASE\PANCRELIPASE PROTEASE

REACTIONS (2)
  - Lung infection [None]
  - Haematemesis [None]

NARRATIVE: CASE EVENT DATE: 20150819
